FAERS Safety Report 10561947 (Version 2)
Quarter: 2014Q4

REPORT INFORMATION
  Report Type: Spontaneous
  Country: US (occurrence: US)
  Receive Date: 20141104
  Receipt Date: 20141204
  Transmission Date: 20150529
  Serious: Yes (Death)
  Sender: FDA-Public Use
  Company Number: US-BEH-2014045947

PATIENT
  Age: 60 Year
  Sex: Male

DRUGS (2)
  1. PRIVIGEN [Suspect]
     Active Substance: HUMAN IMMUNOGLOBULIN G
     Indication: AMYOTROPHIC LATERAL SCLEROSIS
     Dosage: 5GM/VIAL;300 TO 600 MG/KG INFUSION EVERY 3-4 WEEKS
     Dates: start: 20140702, end: 20140709
  2. PRIVIGEN [Suspect]
     Active Substance: HUMAN IMMUNOGLOBULIN G
     Indication: POLYNEUROPATHY
     Dosage: 0.4 G/KG DAILY FOR 5 DAYS
     Dates: start: 20140707, end: 20140711

REACTIONS (1)
  - Death [Fatal]

NARRATIVE: CASE EVENT DATE: 20140907
